FAERS Safety Report 17210307 (Version 1)
Quarter: 2019Q4

REPORT INFORMATION
  Report Type: Spontaneous
  Country: US (occurrence: US)
  Receive Date: 20191227
  Receipt Date: 20191227
  Transmission Date: 20200122
  Serious: No
  Sender: FDA-Public Use
  Company Number: US-009507513-1912USA011235

PATIENT
  Age: 32 Year
  Sex: Female

DRUGS (2)
  1. TRUVADA [Concomitant]
     Active Substance: EMTRICITABINE\TENOFOVIR DISOPROXIL FUMARATE
     Indication: PROPHYLAXIS AGAINST HIV INFECTION
     Dosage: ONCE DAILY FOR 28 DAYS
     Dates: start: 20191219
  2. ISENTRESS [Suspect]
     Active Substance: RALTEGRAVIR POTASSIUM
     Indication: PROPHYLAXIS AGAINST HIV INFECTION
     Dosage: 200 OR 300 MG TABLETS TO BE TAKEN TWICE DAILY FOR 28 DAYS
     Route: 048
     Dates: start: 20191219

REACTIONS (3)
  - Product prescribing issue [Unknown]
  - Product use in unapproved indication [Unknown]
  - Product dose omission [Unknown]

NARRATIVE: CASE EVENT DATE: 20191219
